FAERS Safety Report 25310273 (Version 2)
Quarter: 2025Q3

REPORT INFORMATION
  Report Type: Spontaneous
  Country: US (occurrence: US)
  Receive Date: 20250514
  Receipt Date: 20250707
  Transmission Date: 20251020
  Serious: Yes (Hospitalization, Other)
  Sender: NOVO NORDISK
  Company Number: US-NOVOPROD-1426152

PATIENT
  Age: 74 Year
  Sex: Female

DRUGS (14)
  1. OZEMPIC [Suspect]
     Active Substance: SEMAGLUTIDE
     Indication: Type 2 diabetes mellitus
     Route: 058
     Dates: start: 20241018
  2. OZEMPIC [Suspect]
     Active Substance: SEMAGLUTIDE
     Indication: Blood pressure increased
  3. OZEMPIC [Suspect]
     Active Substance: SEMAGLUTIDE
     Indication: Chronic kidney disease
  4. OZEMPIC [Suspect]
     Active Substance: SEMAGLUTIDE
     Indication: Blood potassium abnormal
  5. VICTOZA [Suspect]
     Active Substance: LIRAGLUTIDE
     Indication: Type 2 diabetes mellitus
  6. TRAZODONE [Suspect]
     Active Substance: TRAZODONE HYDROCHLORIDE
     Indication: Product used for unknown indication
     Dates: end: 202501
  7. CHLORTHALIDONE [Concomitant]
     Active Substance: CHLORTHALIDONE
     Indication: Product used for unknown indication
     Dates: start: 201710, end: 20241018
  8. LOSARTAN [Suspect]
     Active Substance: LOSARTAN
     Indication: Product used for unknown indication
  9. METOPROLOL [Concomitant]
     Active Substance: METOPROLOL
     Indication: Product used for unknown indication
  10. ZYRTEC [Concomitant]
     Active Substance: CETIRIZINE HYDROCHLORIDE
     Indication: Product used for unknown indication
  11. POTASSIUM [Concomitant]
     Active Substance: POTASSIUM
     Indication: Product used for unknown indication
     Dates: end: 20241018
  12. LASIX [Concomitant]
     Active Substance: FUROSEMIDE
     Indication: Product used for unknown indication
     Dates: start: 202410, end: 202410
  13. FINERENONE [Concomitant]
     Active Substance: FINERENONE
     Indication: Product used for unknown indication
     Dosage: 1 MG, QD
  14. HYDROCHLOROTHIAZIDE [Concomitant]
     Active Substance: HYDROCHLOROTHIAZIDE
     Indication: Product used for unknown indication

REACTIONS (12)
  - Chest pain [Recovered/Resolved]
  - Stress cardiomyopathy [Recovered/Resolved]
  - Cardiac failure congestive [Recovered/Resolved]
  - Myocardial infarction [Recovered/Resolved]
  - Coronary artery occlusion [Unknown]
  - Catheter placement [Unknown]
  - Nasopharyngitis [Recovered/Resolved]
  - Orthostatic hypertension [Recovered/Resolved]
  - Amnesia [Unknown]
  - Unevaluable event [Unknown]
  - Product storage error [Unknown]
  - Product communication issue [Unknown]

NARRATIVE: CASE EVENT DATE: 20240101
